FAERS Safety Report 8740905 (Version 2)
Quarter: 2013Q4

REPORT INFORMATION
  Report Type: Report from Study
  Country: JP (occurrence: JP)
  Receive Date: 20120823
  Receipt Date: 20131106
  Transmission Date: 20140711
  Serious: Yes (Death)
  Sender: FDA-Public Use
  Company Number: JP-009507513-1201USA01989

PATIENT
  Age: 73 Year
  Sex: Female
  Weight: 44 kg

DRUGS (9)
  1. JANUVIA TABLETS 50MG [Suspect]
     Indication: TYPE 2 DIABETES MELLITUS
     Dosage: 50 MG, QD
     Route: 048
     Dates: start: 20110106, end: 201103
  2. THEO-DUR [Concomitant]
     Indication: ASTHMA
     Dosage: 100 MG, TID
     Route: 048
  3. MEPTIN [Concomitant]
     Indication: ASTHMA
     Dosage: UNK UNK, BID
     Route: 048
  4. BISOLVON [Concomitant]
     Indication: BRONCHITIS CHRONIC
     Dosage: 4 MG, TID
     Route: 048
  5. HALCION [Concomitant]
     Indication: INSOMNIA
     Dosage: 0.2 MG, QD
     Route: 048
  6. PREDONINE [Concomitant]
     Indication: ASTHMA
     Dosage: 5 MG, QD
     Route: 048
     Dates: start: 20081219
  7. GASTER D [Concomitant]
     Indication: GASTRITIS
     Dosage: 10 MG, QD
     Route: 048
     Dates: start: 20081219
  8. ADOAIR [Concomitant]
     Indication: ASTHMA
     Dosage: 2 DF, QD
     Route: 055
  9. MEPTIN [Concomitant]
     Indication: ASTHMA
     Dosage: DAILY DOSE UNKNOWN
     Route: 055
     Dates: start: 20081114, end: 20110604

REACTIONS (1)
  - Death [Fatal]
